FAERS Safety Report 8205065-7 (Version None)
Quarter: 2012Q1

REPORT INFORMATION
  Report Type: 
  Country: None (occurrence: None)
  Receive Date: 20120313
  Receipt Date: 20120309
  Transmission Date: 20120608
  Serious: Yes (Other)
  Sender: FDA-Public Use
  Company Number: PL-ROCHE-1036414

PATIENT
  Age: 64 Year
  Sex: Male
  Weight: 78.7 kg

DRUGS (2)
  1. VEMURAFENIB [Suspect]
     Indication: METASTATIC MALIGNANT MELANOMA
     Dosage: LAST DOSE PRIOR TO SAE: 30/JAN/2012
     Route: 048
     Dates: start: 20120103
  2. CAPTOPRIL [Concomitant]
     Dates: start: 20071001

REACTIONS (1)
  - ACANTHOSIS [None]
